FAERS Safety Report 23176331 (Version 4)
Quarter: 2024Q1

REPORT INFORMATION
  Report Type: Spontaneous
  Country: US (occurrence: US)
  Receive Date: 20231113
  Receipt Date: 20240319
  Transmission Date: 20240410
  Serious: Yes (Hospitalization, Other)
  Sender: FDA-Public Use
  Company Number: US-BRISTOL-MYERS SQUIBB COMPANY-2023-161484

PATIENT
  Age: 76 Year
  Sex: Female

DRUGS (4)
  1. POMALYST [Suspect]
     Active Substance: POMALIDOMIDE
     Indication: Plasma cell myeloma
     Route: 048
  2. POMALYST [Suspect]
     Active Substance: POMALIDOMIDE
     Dosage: QD FOR 21 DAYS ON AND 7 DAYS OFF.
     Route: 048
  3. POMALYST [Suspect]
     Active Substance: POMALIDOMIDE
     Route: 048
  4. DARATUMUMAB [Suspect]
     Active Substance: DARATUMUMAB
     Indication: Product used for unknown indication
     Dosage: INFUSION

REACTIONS (6)
  - Pneumonia [Unknown]
  - Immunodeficiency [Unknown]
  - Urinary tract infection [Unknown]
  - Loss of consciousness [Unknown]
  - Bacterial infection [Unknown]
  - Thrombosis [Unknown]

NARRATIVE: CASE EVENT DATE: 20240201
